FAERS Safety Report 8677957 (Version 2)
Quarter: 2012Q4

REPORT INFORMATION
  Report Type: 
  Country: US (occurrence: US)
  Receive Date: 20120723
  Receipt Date: 20121029
  Transmission Date: 20130627
  Serious: Yes (Other)
  Sender: FDA-Public Use
  Company Number: US-ROCHE-1088523

PATIENT
  Sex: Male
  Weight: 86.26 kg

DRUGS (4)
  1. ACCUTANE [Suspect]
     Indication: ACNE
     Route: 065
     Dates: start: 1990
  2. ACCUTANE [Suspect]
     Route: 065
     Dates: start: 1994
  3. ACCUTANE [Suspect]
     Route: 065
     Dates: start: 19980519, end: 19980701
  4. ACCUTANE [Suspect]
     Route: 065
     Dates: start: 19991118

REACTIONS (2)
  - Crohn^s disease [Unknown]
  - Anxiety [Unknown]
